FAERS Safety Report 13885659 (Version 1)
Quarter: 2017Q3

REPORT INFORMATION
  Report Type: Other
  Country: CA (occurrence: CA)
  Receive Date: 20170821
  Receipt Date: 20170821
  Transmission Date: 20171127
  Serious: No
  Sender: FDA-Public Use
  Company Number: CA-LUPIN PHARMACEUTICALS INC.-2017-03017

PATIENT
  Age: 49 Year
  Sex: Female

DRUGS (1)
  1. JENCYCLA [Suspect]
     Active Substance: NORETHINDRONE
     Indication: PRODUCT USED FOR UNKNOWN INDICATION
     Dosage: UNK, QD
     Route: 048

REACTIONS (4)
  - Condition aggravated [Recovering/Resolving]
  - Depressed mood [Recovering/Resolving]
  - Loss of personal independence in daily activities [Recovering/Resolving]
  - Asthenia [Recovering/Resolving]
